FAERS Safety Report 10045262 (Version 1)
Quarter: 2014Q1

REPORT INFORMATION
  Report Type: Spontaneous
  Country: US (occurrence: US)
  Receive Date: 20140328
  Receipt Date: 20140328
  Transmission Date: 20141002
  Serious: Yes (Hospitalization, Other)
  Sender: FDA-Public Use
  Company Number: US-ENDO PHARMACEUTICALS INC.-OPCR20140102

PATIENT
  Sex: 0

DRUGS (1)
  1. OPANA ER [Suspect]
     Indication: DRUG ABUSE
     Dosage: UNKNOWN

REACTIONS (4)
  - Hospitalisation [Unknown]
  - Incorrect route of drug administration [Unknown]
  - Drug abuse [Unknown]
  - Malaise [Unknown]
